FAERS Safety Report 17927612 (Version 13)
Quarter: 2022Q1

REPORT INFORMATION
  Report Type: Spontaneous
  Country: US (occurrence: US)
  Receive Date: 20200623
  Receipt Date: 20220304
  Transmission Date: 20220424
  Serious: Yes (Hospitalization, Other)
  Sender: FDA-Public Use
  Company Number: US-GLOBAL BLOOD THERAPEUTICS INC-US-GBT-20-01165

PATIENT
  Age: 40 Year
  Sex: Male

DRUGS (3)
  1. OXBRYTA [Suspect]
     Active Substance: VOXELOTOR
     Indication: Sickle cell disease
     Route: 048
     Dates: start: 20191227, end: 2021
  2. OXBRYTA [Suspect]
     Active Substance: VOXELOTOR
     Route: 048
     Dates: start: 2021
  3. JADENU [Concomitant]
     Active Substance: DEFERASIROX
     Indication: Product used for unknown indication
     Dosage: TAKE 3 TABLETS BY MOUTH ONCE A DAY ON ODD DAYS AND TAKE 4 TABLETS ON EVEN DAYS..

REACTIONS (20)
  - Tooth extraction [Unknown]
  - Pulmonary oedema [Unknown]
  - Sickle cell anaemia with crisis [Unknown]
  - Sickle cell anaemia with crisis [Not Recovered/Not Resolved]
  - Sickle cell anaemia with crisis [Not Recovered/Not Resolved]
  - Lung disorder [Not Recovered/Not Resolved]
  - Product residue present [Unknown]
  - Drug interaction [Unknown]
  - Haemoglobin decreased [Unknown]
  - Infusion [Unknown]
  - Blood iron increased [Unknown]
  - Weight fluctuation [Unknown]
  - Weight decreased [Not Recovered/Not Resolved]
  - Toothache [Unknown]
  - Frequent bowel movements [Unknown]
  - Headache [Unknown]
  - Nausea [Unknown]
  - Diarrhoea [Not Recovered/Not Resolved]
  - Product use complaint [Unknown]
  - Product dose omission issue [Unknown]

NARRATIVE: CASE EVENT DATE: 20191201
